FAERS Safety Report 23298262 (Version 1)
Quarter: 2023Q4

REPORT INFORMATION
  Report Type: Spontaneous
  Country: US (occurrence: None)
  Receive Date: 20231214
  Receipt Date: 20231214
  Transmission Date: 20240110
  Serious: Yes (Other)
  Sender: FDA-Public Use
  Company Number: None

PATIENT
  Age: 34 Year
  Sex: Female
  Weight: 59.31 kg

DRUGS (1)
  1. DOXYCYCLINE HYCLATE [Suspect]
     Active Substance: DOXYCYCLINE HYCLATE
     Indication: Infection
     Dosage: OTHER QUANTITY : 14 14;?FREQUENCY : TWICE A DAY;?
     Route: 048
     Dates: start: 20211118, end: 20211119

REACTIONS (4)
  - Headache [None]
  - Hypoaesthesia [None]
  - Gait disturbance [None]
  - Nervous system disorder [None]

NARRATIVE: CASE EVENT DATE: 20211118
